FAERS Safety Report 19439181 (Version 3)
Quarter: 2022Q2

REPORT INFORMATION
  Report Type: Spontaneous
  Country: FI (occurrence: FI)
  Receive Date: 20210619
  Receipt Date: 20220411
  Transmission Date: 20220721
  Serious: Yes (Hospitalization, Other)
  Sender: FDA-Public Use
  Company Number: FI-BAYER-2021-159223

PATIENT
  Age: 51 Year
  Sex: Female

DRUGS (16)
  1. XARELTO [Suspect]
     Active Substance: RIVAROXABAN
     Indication: Venous thrombosis
     Dosage: 15 MG, BID
     Route: 048
     Dates: start: 20210530, end: 20210609
  2. QUETIAPINE FUMARATE [Concomitant]
     Active Substance: QUETIAPINE FUMARATE
     Dosage: UNK
     Dates: start: 20210401
  3. PANTOPRAZOLE SODIUM [Concomitant]
     Active Substance: PANTOPRAZOLE SODIUM
     Dosage: 20 MG, QD
     Dates: start: 20200610
  4. FLUTICASONE FUROATE [Concomitant]
     Active Substance: FLUTICASONE FUROATE
     Dosage: 110 UG, QD
     Dates: start: 20210111
  5. TRAMADOL [Concomitant]
     Active Substance: TRAMADOL
     Dosage: 200 MG, QD
     Route: 048
     Dates: start: 20200325
  6. TRAMADOL [Concomitant]
     Active Substance: TRAMADOL
     Dosage: UNK
     Route: 048
     Dates: start: 20200512
  7. ONDANSETRON HAMELN [Concomitant]
     Dosage: UNK
     Route: 042
     Dates: start: 20210609
  8. VENLAFAXINE ORION [Concomitant]
     Dosage: 75 MG, QD
     Route: 048
     Dates: start: 20201125
  9. VENLAFAXINE HYDROCHLORIDE [Concomitant]
     Active Substance: VENLAFAXINE HYDROCHLORIDE
     Dosage: 150 MG, QD
     Route: 048
     Dates: start: 20201230
  10. PANADOL FORTE [PARACETAMOL] [Concomitant]
     Dosage: UNK
     Route: 048
     Dates: start: 20200903
  11. PREGABALIN [Concomitant]
     Active Substance: PREGABALIN
     Dosage: 300 MG, QD
     Route: 048
     Dates: start: 20200908
  12. TIZANIDINE [Concomitant]
     Active Substance: TIZANIDINE
     Dosage: UNK
     Route: 048
     Dates: start: 20190730
  13. PROPRANOLOL HYDROCHLORIDE [Concomitant]
     Active Substance: PROPRANOLOL HYDROCHLORIDE
     Dosage: UNK
     Route: 048
     Dates: start: 20200610
  14. MELATONIN [Concomitant]
     Active Substance: MELATONIN
     Dosage: UNK
     Route: 048
     Dates: start: 20210201
  15. EXEMESTANE [Concomitant]
     Active Substance: EXEMESTANE
  16. ESCITALOPRAM [Concomitant]
     Active Substance: ESCITALOPRAM OXALATE

REACTIONS (1)
  - Pulmonary embolism [Recovered/Resolved]

NARRATIVE: CASE EVENT DATE: 20210609
